FAERS Safety Report 25271005 (Version 1)
Quarter: 2025Q2

REPORT INFORMATION
  Report Type: Report from Study
  Country: US (occurrence: US)
  Receive Date: 20250506
  Receipt Date: 20250506
  Transmission Date: 20250716
  Serious: Yes (Death, Other)
  Sender: ACADIA PHARMACEUTICALS
  Company Number: US-ACADIA PHARMACEUTICALS INC.-ACA-2025-PIM-005071

PATIENT
  Age: 76 Year
  Sex: Female

DRUGS (13)
  1. NUPLAZID [Suspect]
     Active Substance: PIMAVANSERIN TARTRATE
     Indication: Hallucination
     Dosage: 34 MILLIGRAM, QD
     Route: 065
     Dates: start: 20250129
  2. NUPLAZID [Suspect]
     Active Substance: PIMAVANSERIN TARTRATE
     Indication: Delusion
  3. NUPLAZID [Suspect]
     Active Substance: PIMAVANSERIN TARTRATE
     Indication: Parkinson^s disease
  4. ALENDRONATE [Concomitant]
     Active Substance: ALENDRONATE SODIUM
  5. ATENOLOL [Concomitant]
     Active Substance: ATENOLOL
  6. CITALOPRAM [Concomitant]
     Active Substance: CITALOPRAM
  7. CLONIDINE [Concomitant]
     Active Substance: CLONIDINE
  8. CLOPIDOGREL [Concomitant]
     Active Substance: CLOPIDOGREL BISULFATE
  9. LORAZEPAM [Concomitant]
     Active Substance: LORAZEPAM
  10. OLMESARTAN [Concomitant]
     Active Substance: OLMESARTAN
  11. RIVASTIGMINE [Concomitant]
     Active Substance: RIVASTIGMINE
  12. SIMVASTATIN [Concomitant]
     Active Substance: SIMVASTATIN
  13. TRAZODONE [Concomitant]
     Active Substance: TRAZODONE HYDROCHLORIDE

REACTIONS (1)
  - Death [Fatal]

NARRATIVE: CASE EVENT DATE: 20250401
